FAERS Safety Report 22050819 (Version 1)
Quarter: 2023Q1

REPORT INFORMATION
  Report Type: Spontaneous
  Country: IL (occurrence: IL)
  Receive Date: 20230301
  Receipt Date: 20230301
  Transmission Date: 20230418
  Serious: Yes (Life-Threatening, Hospitalization)
  Sender: FDA-Public Use
  Company Number: IL-PFIZER INC-PV202300035977

PATIENT
  Age: 67 Year
  Sex: Female

DRUGS (4)
  1. HYDROCORTISONE SODIUM SUCCINATE [Suspect]
     Active Substance: HYDROCORTISONE SODIUM SUCCINATE
     Indication: Arrhythmia supraventricular
     Dosage: 2 MG/KG
     Route: 042
  2. PREDNISOLONE [Suspect]
     Active Substance: PREDNISOLONE
     Indication: Arrhythmia supraventricular
     Dosage: 0.5 MG/KG, 1X/DAY PER OS, FOR 3 CONSECUTIVE DAYS
     Route: 048
  3. CORTISONE [Suspect]
     Active Substance: CORTISONE
     Indication: Arrhythmia supraventricular
     Dosage: UNK
     Route: 048
  4. WARFARIN [Concomitant]
     Active Substance: WARFARIN
     Dosage: UNK

REACTIONS (2)
  - Myocardial rupture [Recovered/Resolved]
  - Off label use [Unknown]
